FAERS Safety Report 25713265 (Version 1)
Quarter: 2025Q3

REPORT INFORMATION
  Report Type: Spontaneous
  Country: US (occurrence: US)
  Receive Date: 20250822
  Receipt Date: 20250822
  Transmission Date: 20251020
  Serious: Yes (Hospitalization, Other)
  Sender: EMCURE PHARMACEUTICALS LTD
  Company Number: US-AVET LIFESCIENCES LTD-2025-AVET-000256

PATIENT
  Age: 50 Year
  Sex: Female

DRUGS (10)
  1. VANCOMYCIN HYDROCHLORIDE [Suspect]
     Active Substance: VANCOMYCIN HYDROCHLORIDE
     Indication: Evidence based treatment
     Route: 065
  2. ZOSYN [Suspect]
     Active Substance: PIPERACILLIN SODIUM\TAZOBACTAM SODIUM
     Indication: Evidence based treatment
     Route: 065
  3. PROPYLTHIOURACIL [Concomitant]
     Active Substance: PROPYLTHIOURACIL
     Indication: Thyrotoxic crisis
     Dosage: 200 MG, 1 DOSE PER 4HRS
     Route: 048
  4. HYDROCORTISONE [Concomitant]
     Active Substance: HYDROCORTISONE
     Indication: Thyrotoxic crisis
     Route: 042
  5. ATENOLOL [Concomitant]
     Active Substance: ATENOLOL
     Route: 048
  6. PEMBROLIZUMAB [Concomitant]
     Active Substance: PEMBROLIZUMAB
     Indication: Immunochemotherapy
     Dosage: UNK, 1 DOSE PER3 W, 4 CYCLES
  7. PACLITAXEL [Concomitant]
     Active Substance: PACLITAXEL
     Indication: Chemotherapy
     Dosage: UNK, 1 DOSE PER 3W, 4 CYCLES
  8. CARBOPLATIN [Concomitant]
     Active Substance: CARBOPLATIN
     Indication: Chemotherapy
     Dosage: UNK, 1 DOSE PER 3W, 4 CYCLES
  9. CYCLOPHOSPHAMIDE [Concomitant]
     Active Substance: CYCLOPHOSPHAMIDE
     Indication: Chemotherapy
     Dosage: UNK, 1 DOSE PER 3W, 4 CYCLES
  10. DOXORUBICIN [Concomitant]
     Active Substance: DOXORUBICIN
     Indication: Chemotherapy
     Dosage: UNK, 1 DOSE PER 3W, 4 CYCLES

REACTIONS (1)
  - Renal tubular necrosis [Recovering/Resolving]
